FAERS Safety Report 9846732 (Version 2)
Quarter: 2014Q1

REPORT INFORMATION
  Report Type: Spontaneous
  Country: US (occurrence: US)
  Receive Date: 20140127
  Receipt Date: 20140127
  Transmission Date: 20141002
  Serious: No
  Sender: FDA-Public Use
  Company Number: US-GILEAD-2011-0048461

PATIENT
  Age: 51 Year
  Sex: Female
  Weight: 75.28 kg

DRUGS (11)
  1. COMPLERA [Suspect]
     Indication: HIV INFECTION
     Dosage: 1 DF, UNK
     Route: 048
     Dates: start: 20111210, end: 20111217
  2. TRUVADA [Concomitant]
     Indication: HIV INFECTION
  3. PREZISTA                           /05513801/ [Concomitant]
     Indication: HIV INFECTION
  4. RITONAVIR [Concomitant]
     Indication: HIV INFECTION
  5. ESTRACE [Concomitant]
     Indication: PRODUCT USED FOR UNKNOWN INDICATION
     Dosage: 20 MG, UNK
     Route: 048
  6. LIPITOR [Concomitant]
     Indication: PRODUCT USED FOR UNKNOWN INDICATION
     Dosage: 20 MG, UNK
     Route: 048
  7. ADVAIR [Concomitant]
     Indication: PRODUCT USED FOR UNKNOWN INDICATION
  8. FENTANYL                           /00174602/ [Concomitant]
     Indication: PRODUCT USED FOR UNKNOWN INDICATION
     Dosage: 25 MG, Q3DAYS
  9. LOTENSIN                           /00498401/ [Concomitant]
     Indication: PRODUCT USED FOR UNKNOWN INDICATION
     Dosage: 10 MG, UNK
     Route: 048
  10. PROZAC [Concomitant]
     Indication: PRODUCT USED FOR UNKNOWN INDICATION
     Dosage: 50 MG, UNK
     Route: 048
  11. SEROQUEL [Concomitant]
     Indication: PRODUCT USED FOR UNKNOWN INDICATION
     Dosage: 100 MG, QHS
     Route: 048

REACTIONS (1)
  - Rash [Recovering/Resolving]
